FAERS Safety Report 4546865-4 (Version None)
Quarter: 2005Q1

REPORT INFORMATION
  Report Type: 
  Country: None (occurrence: None)
  Receive Date: 20050105
  Receipt Date: 20041229
  Transmission Date: 20050727
  Serious: Yes (Hospitalization)
  Sender: FDA-Public Use
  Company Number: 2004092477

PATIENT
  Age: 35 Year
  Sex: Male

DRUGS (2)
  1. TAHOR           (ATORVASTATIN) [Suspect]
     Indication: HYPERCHOLESTEROLAEMIA
     Dosage: 20 MG (20 MG, 1 IN 1 D), ORAL
     Route: 048
     Dates: start: 20040813, end: 20040919
  2. MEBEVERINE HYDROCHLORIDE           (MEBEVERINE HYDROCHLORIDE) [Concomitant]

REACTIONS (12)
  - BLOOD IMMUNOGLOBULIN G INCREASED [None]
  - BLOOD IMMUNOGLOBULIN M DECREASED [None]
  - CREATINE PHOSPHOKINASE DECREASED [None]
  - ECCHYMOSIS [None]
  - ERYTHEMA [None]
  - HENOCH-SCHONLEIN PURPURA [None]
  - OEDEMA PERIPHERAL [None]
  - PAIN IN EXTREMITY [None]
  - PRURITUS [None]
  - PURPURA [None]
  - SKIN LESION [None]
  - TENDON DISORDER [None]
